FAERS Safety Report 16143588 (Version 1)
Quarter: 2019Q2

REPORT INFORMATION
  Report Type: Spontaneous
  Country: FR (occurrence: FR)
  Receive Date: 20190401
  Receipt Date: 20190401
  Transmission Date: 20190711
  Serious: Yes (Hospitalization)
  Sender: FDA-Public Use
  Company Number: FR-TEVA-2019-FR-1031357

PATIENT
  Age: 2 Year
  Sex: Male

DRUGS (3)
  1. VEPESIDE SANDOZ [Suspect]
     Active Substance: ETOPOSIDE
     Indication: BONE SARCOMA
     Dosage: 20 MILLIGRAM DAILY;
     Route: 042
     Dates: start: 20040802
  2. HOLOXAN [Suspect]
     Active Substance: IFOSFAMIDE
     Indication: BONE SARCOMA
     Dosage: 850 MILLIGRAM DAILY;
     Route: 042
     Dates: start: 20040802
  3. METHOTREXATE. [Suspect]
     Active Substance: METHOTREXATE
     Indication: BONE SARCOMA
     Route: 042
     Dates: start: 20041025, end: 20050519

REACTIONS (1)
  - Neuropathy peripheral [Recovered/Resolved]

NARRATIVE: CASE EVENT DATE: 20051014
